FAERS Safety Report 16759363 (Version 1)
Quarter: 2019Q3

REPORT INFORMATION
  Report Type: Spontaneous
  Country: US (occurrence: US)
  Receive Date: 20190830
  Receipt Date: 20190830
  Transmission Date: 20191005
  Serious: No
  Sender: FDA-Public Use
  Company Number: US-MYLANLABS-2019M1077804

PATIENT
  Sex: Female
  Weight: 73 kg

DRUGS (1)
  1. ELESTRIN [Suspect]
     Active Substance: ESTRADIOL
     Indication: MENOPAUSAL SYMPTOMS
     Dosage: ONE PUMP TO RIGHT ARM DAILY
     Route: 003
     Dates: start: 2004

REACTIONS (2)
  - Pain in extremity [Not Recovered/Not Resolved]
  - Muscular weakness [Not Recovered/Not Resolved]
